FAERS Safety Report 9877847 (Version 1)
Quarter: 2014Q1

REPORT INFORMATION
  Report Type: Spontaneous
  Country: US (occurrence: US)
  Receive Date: 20140206
  Receipt Date: 20140206
  Transmission Date: 20141002
  Serious: Yes (Hospitalization)
  Sender: FDA-Public Use
  Company Number: US-BAYER-2014-014398

PATIENT
  Sex: Female

DRUGS (1)
  1. CIPRO 10% ORAL SUSPENSION [Suspect]

REACTIONS (1)
  - Throat tightness [None]
